FAERS Safety Report 7647155-3 (Version None)
Quarter: 2011Q3

REPORT INFORMATION
  Report Type: 
  Country: None (occurrence: None)
  Receive Date: 20110801
  Receipt Date: 20110721
  Transmission Date: 20111222
  Serious: Yes (Other)
  Sender: FDA-Public Use
  Company Number: US-ROCHE-736095

PATIENT
  Sex: Male
  Weight: 90.7 kg

DRUGS (1)
  1. ACCUTANE [Suspect]
     Indication: ACNE
     Route: 065
     Dates: start: 19850101, end: 19850701

REACTIONS (6)
  - ANXIETY [None]
  - CROHN'S DISEASE [None]
  - RECTAL ABSCESS [None]
  - GASTROINTESTINAL INJURY [None]
  - IRRITABLE BOWEL SYNDROME [None]
  - PANIC ATTACK [None]
